FAERS Safety Report 19377360 (Version 1)
Quarter: 2021Q2

REPORT INFORMATION
  Report Type: Spontaneous
  Country: GB (occurrence: GB)
  Receive Date: 20210605
  Receipt Date: 20210605
  Transmission Date: 20210717
  Serious: Yes (Other)
  Sender: FDA-Public Use
  Company Number: GB-TEVA-2021-GB-1918501

PATIENT
  Age: 39 Year
  Sex: Male
  Weight: 78 kg

DRUGS (8)
  1. DOXYCYCLINE. [Suspect]
     Active Substance: DOXYCYCLINE
     Dosage: 1 DOSAGE FORMS
     Route: 065
     Dates: start: 20210523
  2. CITALOPRAM [Concomitant]
     Active Substance: CITALOPRAM HYDROBROMIDE
     Dosage: 1 DOSAGE  FORMS
     Dates: start: 20210501
  3. ZOPICLONE [Concomitant]
     Active Substance: ZOPICLONE
     Dosage: 1 DOSAGE FORMS
     Dates: start: 20210501, end: 20210504
  4. BENZOYL PEROXIDE. [Concomitant]
     Active Substance: BENZOYL PEROXIDE
     Dosage: APPLICATION, 1DOSAGE FORMS
     Dates: start: 20210329, end: 20210426
  5. OTOMIZE [Concomitant]
     Dosage: SPRAY, 1 DOSAGE FORMS
     Dates: start: 20210430, end: 20210507
  6. METRONIDAZOLE. [Concomitant]
     Active Substance: METRONIDAZOLE
     Dosage: 1 DOSAGE FORMS
     Dates: start: 20210522
  7. CLARITHROMYCIN. [Concomitant]
     Active Substance: CLARITHROMYCIN
     Dosage: 1 DOSAGE FORMS
     Dates: start: 20210430, end: 20210508
  8. IBUPROFEN. [Concomitant]
     Active Substance: IBUPROFEN
     Dosage: 1 DOSAGE FORMS
     Dates: start: 20210507

REACTIONS (1)
  - Swollen tongue [Recovering/Resolving]

NARRATIVE: CASE EVENT DATE: 20210523
